FAERS Safety Report 8433403 (Version 3)
Quarter: 2012Q4

REPORT INFORMATION
  Report Type: 
  Country: FR (occurrence: FR)
  Receive Date: 20120229
  Receipt Date: 20120927
  Transmission Date: 20130627
  Serious: Yes (Hospitalization)
  Sender: FDA-Public Use
  Company Number: FR-PFIZER INC-2012048925

PATIENT
  Age: 60 Year
  Sex: Female

DRUGS (6)
  1. AROMASINE [Suspect]
     Indication: BREAST CANCER
     Dosage: 25 mg, UNK
     Dates: end: 201010
  2. FLUOROURACIL [Suspect]
     Indication: BREAST CANCER
     Dosage: UNK
  3. EPIRUBICIN HCL [Suspect]
     Indication: BREAST CANCER
     Dosage: UNK
  4. CYCLOPHOSPHAMIDE [Suspect]
     Indication: BREAST CANCER
     Dosage: UNK
  5. TAMOXIFEN [Suspect]
     Indication: BREAST CANCER
     Dosage: UNK
  6. ARIMIDEX [Suspect]
     Indication: BREAST CANCER
     Dosage: UNK

REACTIONS (1)
  - Pulmonary hypertension [Not Recovered/Not Resolved]
